FAERS Safety Report 18171438 (Version 1)
Quarter: 2020Q3

REPORT INFORMATION
  Report Type: Report from Study
  Country: US (occurrence: US)
  Receive Date: 20200819
  Receipt Date: 20200819
  Transmission Date: 20201103
  Serious: No
  Sender: FDA-Public Use
  Company Number: US-AMGEN-USA-20191106274

PATIENT
  Age: 43 Year
  Sex: Male

DRUGS (2)
  1. OTEZLA [Suspect]
     Active Substance: APREMILAST
     Indication: PSORIASIS
     Dosage: 30 MILLIGRAM, QD
     Route: 065
     Dates: start: 2020
  2. OTEZLA [Suspect]
     Active Substance: APREMILAST
     Indication: PSORIASIS
     Dosage: 30 MILLIGRAM, BID
     Route: 048
     Dates: start: 20190901

REACTIONS (9)
  - Diarrhoea [Recovered/Resolved]
  - Product dose omission issue [Unknown]
  - Weight decreased [Unknown]
  - Bone pain [Not Recovered/Not Resolved]
  - Vomiting [Recovered/Resolved]
  - Psoriasis [Unknown]
  - Nausea [Recovered/Resolved]
  - Therapy partial responder [Unknown]
  - Cough [Unknown]

NARRATIVE: CASE EVENT DATE: 2019
